FAERS Safety Report 4736801-X (Version None)
Quarter: 2005Q3

REPORT INFORMATION
  Report Type: 
  Country: None (occurrence: None)
  Receive Date: 20050808
  Receipt Date: 20050708
  Transmission Date: 20060218
  Serious: Yes (Other)
  Sender: FDA-Public Use
  Company Number: US-MERCK-0507USA01205

PATIENT
  Sex: Female

DRUGS (2)
  1. VIOXX [Suspect]
     Indication: SCOLIOSIS
     Route: 048
     Dates: start: 20010511, end: 20030516
  2. ASPIRIN [Concomitant]
     Route: 065

REACTIONS (1)
  - CEREBROVASCULAR ACCIDENT [None]
